FAERS Safety Report 21822440 (Version 2)
Quarter: 2023Q1

REPORT INFORMATION
  Report Type: Spontaneous
  Country: FR (occurrence: None)
  Receive Date: 20230105
  Receipt Date: 20230215
  Transmission Date: 20230417
  Serious: Yes (Death)
  Sender: FDA-Public Use
  Company Number: FR-ROCHE-3256522

PATIENT
  Age: 94 Year
  Sex: Male
  Weight: 58.1 kg

DRUGS (5)
  1. ERIVEDGE [Suspect]
     Active Substance: VISMODEGIB
     Indication: Basal cell carcinoma
     Dosage: HARD CAPSULES 150 MG 28 FOR AT LEAST 2 YEARS, 1 CAPSULE FOR 7 DAYS EVERY 2ND WEEK
     Route: 048
     Dates: start: 20200907, end: 20221230
  2. ELIQUIS [Concomitant]
     Active Substance: APIXABAN
     Route: 048
  3. XANAX [Concomitant]
     Active Substance: ALPRAZOLAM
     Route: 048
  4. BISOPROLOL [Concomitant]
     Active Substance: BISOPROLOL
     Route: 048
  5. ESCITALOPRAM OXALATE [Concomitant]
     Active Substance: ESCITALOPRAM OXALATE
     Route: 048

REACTIONS (2)
  - Pneumonia [Fatal]
  - Hypoxia [Fatal]

NARRATIVE: CASE EVENT DATE: 20230102
